FAERS Safety Report 8689931 (Version 3)
Quarter: 2013Q1

REPORT INFORMATION
  Report Type: Spontaneous
  Country: US (occurrence: US)
  Receive Date: 20120727
  Receipt Date: 20130108
  Transmission Date: 20140127
  Serious: Yes (Death, Life-Threatening, Other)
  Sender: FDA-Public Use
  Company Number: US-ASTRAZENECA-2012SE15897

PATIENT
  Age: 79 Year
  Sex: Male

DRUGS (2)
  1. SEROQUEL [Suspect]
     Route: 048
  2. ARICEPT [Concomitant]

REACTIONS (4)
  - Dementia [Fatal]
  - Cerebrovascular accident [Unknown]
  - Headache [Unknown]
  - Aphagia [Unknown]
